FAERS Safety Report 5502807-6 (Version None)
Quarter: 2007Q4

REPORT INFORMATION
  Report Type: 
  Country: None (occurrence: None)
  Receive Date: 20071029
  Receipt Date: 20071022
  Transmission Date: 20080405
  Serious: Yes (Hospitalization)
  Sender: FDA-Public Use
  Company Number: 2007SP016853

PATIENT
  Age: 59 Year
  Sex: Female
  Weight: 72.5755 kg

DRUGS (2)
  1. PEG-INTRON [Suspect]
     Indication: HEPATITIS C
     Dosage: SC
     Route: 058
     Dates: start: 20070501, end: 20070816
  2. REBETOL [Suspect]
     Indication: HEPATITIS C
     Dosage: PO
     Route: 048
     Dates: start: 20070501, end: 20070816

REACTIONS (24)
  - AGITATION [None]
  - ANAEMIA [None]
  - ANGER [None]
  - APHONIA [None]
  - CONDITION AGGRAVATED [None]
  - CONSTIPATION [None]
  - CYSTITIS [None]
  - DEHYDRATION [None]
  - DYSURIA [None]
  - EMOTIONAL DISTRESS [None]
  - HEADACHE [None]
  - HOT FLUSH [None]
  - HYPERTENSION [None]
  - IMPAIRED DRIVING ABILITY [None]
  - INCOHERENT [None]
  - INFLUENZA LIKE ILLNESS [None]
  - INSOMNIA [None]
  - MALAISE [None]
  - ORAL HERPES [None]
  - ORAL INTAKE REDUCED [None]
  - PERFORMANCE STATUS DECREASED [None]
  - ROAD TRAFFIC ACCIDENT [None]
  - VOMITING [None]
  - WEIGHT DECREASED [None]
